FAERS Safety Report 9700814 (Version 1)
Quarter: 2013Q4

REPORT INFORMATION
  Report Type: Report from Study
  Country: BR (occurrence: BR)
  Receive Date: 20131121
  Receipt Date: 20131121
  Transmission Date: 20140711
  Serious: Yes (Death, Hospitalization, Other)
  Sender: FDA-Public Use
  Company Number: PHHY2013BR132335

PATIENT
  Sex: Female
  Weight: 47 kg

DRUGS (4)
  1. ACLASTA [Suspect]
     Indication: OSTEOPOROSIS
     Dosage: 5 MG, UNK
     Route: 042
     Dates: start: 2013
  2. SELOZOK [Concomitant]
     Dosage: 100 MG, UNK
     Dates: start: 2008, end: 2013
  3. SYNTHROID [Concomitant]
     Dosage: 50 MG, UNK
     Dates: start: 2008, end: 2013
  4. ALOIS [Concomitant]
     Dosage: UNK UKN, UNK

REACTIONS (7)
  - Ovarian cancer [Fatal]
  - Gastrointestinal neoplasm [Fatal]
  - Peritoneal neoplasm [Fatal]
  - Vomiting [Unknown]
  - Helminthic infection [Unknown]
  - Flatulence [Unknown]
  - Abdominal pain [Unknown]
